FAERS Safety Report 6733689-2 (Version None)
Quarter: 2010Q2

REPORT INFORMATION
  Report Type: 
  Country: None (occurrence: None)
  Receive Date: 20100520
  Receipt Date: 20100416
  Transmission Date: 20101027
  Serious: Yes (Death, Life-Threatening, Hospitalization)
  Sender: FDA-Public Use
  Company Number: IN-PFIZER INC-2010054675

PATIENT
  Age: 65 Year
  Sex: Female

DRUGS (7)
  1. DOXORUBICIN HCL [Suspect]
     Indication: BREAST CANCER
     Dosage: 60 MG/M2, DAY 2 OF A 21 DAY CYCLE
     Route: 042
     Dates: start: 20030221, end: 20030221
  2. GEMZAR [Suspect]
     Indication: BREAST CANCER
     Dosage: 1200 MG/M2, ON DAY 1 AND 8 OF A 21 DAY CYCLE
     Route: 042
     Dates: start: 20030220, end: 20030227
  3. OMEPRAZOLE [Concomitant]
     Indication: GASTRITIS
     Dosage: UNK
     Dates: start: 20030227
  4. METOCLOPRAMIDE [Concomitant]
     Indication: NAUSEA
     Dosage: UNK
     Dates: start: 20030227
  5. METOCLOPRAMIDE [Concomitant]
     Indication: VOMITING
  6. LOMOTIL [Concomitant]
     Indication: DIARRHOEA
     Dosage: UNK
     Dates: start: 20030227
  7. ATIVAN [Concomitant]
     Indication: ANXIETY
     Dosage: UNK
     Dates: start: 20030227

REACTIONS (2)
  - INCORRECT DOSE ADMINISTERED [None]
  - NEUTROPENIC SEPSIS [None]
